FAERS Safety Report 17919240 (Version 1)
Quarter: 2020Q2

REPORT INFORMATION
  Report Type: Report from Study
  Country: US (occurrence: US)
  Receive Date: 20200619
  Receipt Date: 20200619
  Transmission Date: 20200714
  Serious: Yes (Death, Hospitalization, Other)
  Sender: FDA-Public Use
  Company Number: US-BAUSCH-BL-2020-017428

PATIENT
  Age: 68 Year
  Sex: Female

DRUGS (1)
  1. XIFAXAN [Suspect]
     Active Substance: RIFAXIMIN
     Indication: HEPATIC ENCEPHALOPATHY
     Route: 048

REACTIONS (8)
  - Death [Fatal]
  - Internal haemorrhage [Unknown]
  - Renal failure [Unknown]
  - Heart valve incompetence [Unknown]
  - Ascites [Not Recovered/Not Resolved]
  - Post procedural complication [Unknown]
  - Cardiac failure [Unknown]
  - Hepatic failure [Unknown]

NARRATIVE: CASE EVENT DATE: 2020
